FAERS Safety Report 9404972 (Version 1)
Quarter: 2013Q3

REPORT INFORMATION
  Report Type: Spontaneous
  Country: US (occurrence: US)
  Receive Date: 20130717
  Receipt Date: 20130717
  Transmission Date: 20140515
  Serious: Yes (Death, Hospitalization)
  Sender: FDA-Public Use
  Company Number: US-BRISTOL-MYERS SQUIBB COMPANY-18743856

PATIENT
  Age: 58 Year
  Sex: Female

DRUGS (2)
  1. YERVOY [Suspect]
     Indication: METASTATIC MALIGNANT MELANOMA
     Dosage: BATCH NO.921046, EXP 30NOV2014?RECEIVED 1 DOSE
     Dates: start: 20130228
  2. PREDNISONE [Concomitant]
     Route: 048

REACTIONS (3)
  - Malignant neoplasm progression [Fatal]
  - Pericarditis [Unknown]
  - Adverse event [Unknown]
